FAERS Safety Report 6946447-0 (Version None)
Quarter: 2010Q3

REPORT INFORMATION
  Report Type: 
  Country: None (occurrence: None)
  Receive Date: 20100824
  Receipt Date: 20100816
  Transmission Date: 20110219
  Serious: Yes (Hospitalization)
  Sender: FDA-Public Use
  Company Number: 2010080025

PATIENT
  Age: 56 Year
  Sex: Female
  Weight: 44.4525 kg

DRUGS (3)
  1. ONSOLIS [Suspect]
     Indication: CANCER PAIN
     Dosage: TITRATE UP TO 4 FILMS/DOSE (UP TO 4 TIMES DAILY), BU, 400 MCG, UP TO 5 TIMES DAILY), BU
     Route: 002
     Dates: start: 20100125, end: 20100428
  2. ONSOLIS [Suspect]
     Indication: CANCER PAIN
     Dosage: TITRATE UP TO 4 FILMS/DOSE (UP TO 4 TIMES DAILY), BU, 400 MCG, UP TO 5 TIMES DAILY), BU
     Route: 002
     Dates: start: 20100428
  3. FENTANYL-100 [Concomitant]

REACTIONS (1)
  - CHOLELITHIASIS [None]
